FAERS Safety Report 10631738 (Version 2)
Quarter: 2014Q4

REPORT INFORMATION
  Report Type: Report from Study
  Country: KR (occurrence: KR)
  Receive Date: 20141205
  Receipt Date: 20141205
  Transmission Date: 20150529
  Serious: Yes (Hospitalization, Other)
  Sender: FDA-Public Use
  Company Number: PHHY2014KR153287

PATIENT
  Age: 86 Year
  Sex: Male
  Weight: 64 kg

DRUGS (1)
  1. INDACATEROL [Suspect]
     Active Substance: INDACATEROL
     Indication: CHRONIC OBSTRUCTIVE PULMONARY DISEASE
     Dosage: 150 UG, UNK
     Route: 055
     Dates: start: 20140821

REACTIONS (8)
  - Pulmonary hypertension [Unknown]
  - Pleural effusion [Unknown]
  - Mitral valve incompetence [Unknown]
  - Cardiac failure congestive [Recovered/Resolved]
  - Cough [Unknown]
  - Dyspnoea [Unknown]
  - Oedema peripheral [Unknown]
  - Dilatation atrial [Unknown]

NARRATIVE: CASE EVENT DATE: 20141023
